FAERS Safety Report 6837884-3 (Version None)
Quarter: 2010Q3

REPORT INFORMATION
  Report Type: 
  Country: None (occurrence: None)
  Receive Date: 20100713
  Receipt Date: 20070524
  Transmission Date: 20110219
  Serious: No
  Sender: FDA-Public Use
  Company Number: US-PFIZER INC-2007044552

PATIENT
  Sex: Female
  Weight: 95.3 kg

DRUGS (7)
  1. CHANTIX [Suspect]
     Indication: SMOKING CESSATION THERAPY
     Dates: start: 20070401
  2. ZYRTEC [Concomitant]
  3. MONTELUKAST SODIUM [Concomitant]
  4. ADVAIR DISKUS 100/50 [Concomitant]
  5. PIRBUTEROL ACETATE [Concomitant]
  6. VALSARTAN [Concomitant]
  7. RHINOCORT [Concomitant]

REACTIONS (1)
  - NAUSEA [None]
